FAERS Safety Report 14705119 (Version 1)
Quarter: 2018Q2

REPORT INFORMATION
  Report Type: Spontaneous
  Country: CN (occurrence: CN)
  Receive Date: 20180402
  Receipt Date: 20180402
  Transmission Date: 20180711
  Serious: Yes (Hospitalization)
  Sender: FDA-Public Use
  Company Number: CN-PFIZER INC-2018132169

PATIENT
  Age: 51 Year
  Sex: Female
  Weight: 51.6 kg

DRUGS (3)
  1. ZYVOX [Concomitant]
     Active Substance: LINEZOLID
     Indication: INFECTION
     Dosage: 0.6 G, 2X/DAY
     Route: 041
     Dates: start: 20171219, end: 20171224
  2. MEPEM [Concomitant]
     Active Substance: MEROPENEM
     Indication: INFECTION
     Dosage: 1 G, 4X/DAY
     Route: 041
     Dates: start: 20171219, end: 20171224
  3. VFEND [Suspect]
     Active Substance: VORICONAZOLE
     Indication: INFECTION
     Dosage: 200 MG, 2X/DAY
     Route: 041
     Dates: start: 20171219, end: 20171224

REACTIONS (1)
  - Halo vision [Recovering/Resolving]

NARRATIVE: CASE EVENT DATE: 20171224
